FAERS Safety Report 17489635 (Version 1)
Quarter: 2020Q1

REPORT INFORMATION
  Report Type: Report from Study
  Country: ES (occurrence: ES)
  Receive Date: 20200303
  Receipt Date: 20200303
  Transmission Date: 20200409
  Serious: Yes (Hospitalization)
  Sender: FDA-Public Use
  Company Number: ES-MYLANLABS-2020M1022899

PATIENT
  Age: 84 Year
  Sex: Female

DRUGS (6)
  1. CORLENTOR [Concomitant]
     Active Substance: IVABRADINE HYDROCHLORIDE
     Indication: ANGINA PECTORIS
     Dosage: 10 MILLIGRAM, QD, 56 COMPRIMIDOS
     Route: 048
     Dates: start: 20161103, end: 20180414
  2. BETAHISTINA                        /00141802/ [Concomitant]
     Indication: VERTIGO
     Dosage: 32 MILLIGRAM, QD
     Route: 048
     Dates: start: 20160825, end: 20180414
  3. FOLIC ACID. [Concomitant]
     Active Substance: FOLIC ACID
     Indication: ANAEMIA
     Dosage: 5 MILLIGRAM, QD
     Route: 048
     Dates: start: 20161103, end: 20180414
  4. CLOPIDOGREL [Suspect]
     Active Substance: CLOPIDOGREL BISULFATE
     Indication: ACUTE MYOCARDIAL INFARCTION
     Dosage: 75 MILLIGRAM, QD
     Route: 048
     Dates: start: 20161103, end: 20180414
  5. ADIRO [Interacting]
     Active Substance: ASPIRIN
     Indication: ACUTE MYOCARDIAL INFARCTION
     Dosage: 100 MILLIGRAM, QD (30 COMPRIMIDOS (POLIPROPILENO - ALUMINIO))
     Route: 048
     Dates: start: 20161103, end: 20180414
  6. FUROSEMIDA                         /00032601/ [Concomitant]
     Active Substance: FUROSEMIDE
     Indication: CARDIAC FAILURE
     Dosage: 40 MILLIGRAM, QD
     Route: 048
     Dates: start: 20161103

REACTIONS (2)
  - Lower gastrointestinal haemorrhage [Recovered/Resolved]
  - Drug interaction [Unknown]

NARRATIVE: CASE EVENT DATE: 20180413
